FAERS Safety Report 8568162-2 (Version None)
Quarter: 2012Q3

REPORT INFORMATION
  Report Type: 
  Country: None (occurrence: None)
  Receive Date: 20120803
  Receipt Date: 20120705
  Transmission Date: 20120928
  Serious: No
  Sender: FDA-Public Use
  Company Number: US-ABBOTT-12P-163-0953475-00

PATIENT
  Sex: Female
  Weight: 84.444 kg

DRUGS (10)
  1. CINETMET [Concomitant]
     Indication: PRODUCT USED FOR UNKNOWN INDICATION
  2. FAMOTIDINE [Concomitant]
     Indication: PRODUCT USED FOR UNKNOWN INDICATION
  3. METOPROLOL TARTRATE [Concomitant]
     Indication: HYPERTENSION
  4. LEVOTHYROXINE SODIUM [Concomitant]
     Indication: THYROID DISORDER
  5. CHLORICON [Concomitant]
     Indication: PRODUCT USED FOR UNKNOWN INDICATION
  6. BONIVA [Concomitant]
     Indication: PRODUCT USED FOR UNKNOWN INDICATION
  7. MELOXICAM [Concomitant]
     Indication: INFLAMMATION
  8. BACLOFIN [Concomitant]
     Indication: MUSCLE SPASMS
  9. NIASPAN [Suspect]
     Indication: BLOOD CHOLESTEROL INCREASED
     Route: 048
     Dates: start: 20120605
  10. FUROSEMIDE [Concomitant]
     Indication: DIURETIC THERAPY

REACTIONS (2)
  - SKIN BURNING SENSATION [None]
  - PRURITUS [None]
